FAERS Safety Report 20247275 (Version 8)
Quarter: 2022Q2

REPORT INFORMATION
  Report Type: Spontaneous
  Country: DE (occurrence: DE)
  Receive Date: 20211229
  Receipt Date: 20220412
  Transmission Date: 20220721
  Serious: Yes (Hospitalization, Other)
  Sender: FDA-Public Use
  Company Number: DE-LESVI-2021000602

PATIENT
  Age: 82 Year
  Sex: Female

DRUGS (24)
  1. ALENDRONATE [Suspect]
     Active Substance: ALENDRONATE SODIUM
     Indication: Parkinson^s disease
     Dosage: 70 MILLIGRAM, QW,70 MG/WEEK
     Route: 065
  2. OLANZAPINE [Suspect]
     Active Substance: OLANZAPINE
     Indication: Parkinson^s disease
     Dosage: 15 MILLIGRAM, QD
     Route: 065
  3. OLANZAPINE [Suspect]
     Active Substance: OLANZAPINE
     Dosage: 10 MILLIGRAM, QD, 10 MG/DAY
  4. CANDESARTAN [Suspect]
     Active Substance: CANDESARTAN
     Indication: Parkinson^s disease
     Dosage: 16 MILLIGRAM, QD
     Route: 065
  5. OLANZAPINE [Suspect]
     Active Substance: OLANZAPINE
     Indication: Depressive symptom
     Dosage: 15 MILLIGRAM, QD, (15 MG/DAY)
     Route: 065
  6. OLANZAPINE [Suspect]
     Active Substance: OLANZAPINE
     Indication: Parkinson^s disease
  7. PANTOPRAZOLE [Suspect]
     Active Substance: PANTOPRAZOLE
     Indication: Parkinson^s disease
     Dosage: 20 MILLIGRAM, QD,20 MG/DAY
     Route: 065
  8. METAMIZOLE [Suspect]
     Active Substance: METAMIZOLE
     Indication: Parkinson^s disease
     Dosage: 500 MILLIGRAM, BID,(2 X 500 MG/DAY)
     Route: 065
  9. METAMIZOLE [Suspect]
     Active Substance: METAMIZOLE
     Dosage: 1000 MILLIGRAM, QD (500 MILLIGRAM, Q12H)
     Route: 065
  10. IBUPROFEN [Suspect]
     Active Substance: IBUPROFEN
     Indication: Parkinson^s disease
     Dosage: 600 MILLIGRAM, QD (3 X 200 MG/DAY, Q8HR)
     Route: 065
  11. IBUPROFEN [Suspect]
     Active Substance: IBUPROFEN
     Dosage: 600 MILLIGRAM, QD, (200 MILLIGRAM, Q8HR)
     Route: 065
  12. MIRTAZAPINE [Suspect]
     Active Substance: MIRTAZAPINE
     Indication: Psychotic symptom
     Dosage: 30 MILLIGRAM, QD(30 MG/DAY)
     Route: 048
  13. MIRTAZAPINE [Suspect]
     Active Substance: MIRTAZAPINE
     Indication: Depressive symptom
     Dosage: UNK
  14. MIRTAZAPINE [Suspect]
     Active Substance: MIRTAZAPINE
     Indication: Parkinson^s disease
     Dosage: 30 MILLIGRAM, QD
     Route: 065
  15. LEVOTHYROXINE [Suspect]
     Active Substance: LEVOTHYROXINE
     Indication: Parkinson^s disease
     Dosage: 62.5 MICROGRAM, QD, 62.5 ?G/DAY
     Route: 016
  16. CHOLECALCIFEROL [Suspect]
     Active Substance: CHOLECALCIFEROL
     Indication: Parkinson^s disease
     Dosage: 1 INTERNATIONAL UNIT, QD,(1.000 I.U./DAY)
     Route: 065
  17. CHOLECALCIFEROL [Suspect]
     Active Substance: CHOLECALCIFEROL
     Dosage: 1000 INTERNATIONAL UNIT, QD, (UNK UNK, QD)
     Route: 065
  18. URSODIOL [Suspect]
     Active Substance: URSODIOL
     Indication: Parkinson^s disease
     Dosage: 500 MILLIGRAM, QD,500MG/DAY
     Route: 065
  19. DOXEPIN [Suspect]
     Active Substance: DOXEPIN
     Indication: Sleep disorder
     Dosage: 12.5 MILLIGRAM, QD (12.5 MG, DAILY)
  20. DOXEPIN [Suspect]
     Active Substance: DOXEPIN
     Indication: Insomnia
  21. CHOLECALCIFEROL [Concomitant]
     Active Substance: CHOLECALCIFEROL
     Dosage: 1.000 IU/DAY
  22. URSODIOL [Concomitant]
     Active Substance: URSODIOL
     Dosage: 500 MILLIGRAM, QD (500 MG/DAY)
  23. CANDESARTAN [Concomitant]
     Active Substance: CANDESARTAN
     Dosage: 16 MILLIGRAM, QD (16 MG/DAY)
  24. LEVOTHYROXINE [Concomitant]
     Active Substance: LEVOTHYROXINE
     Dosage: 62.5 PG/DAY

REACTIONS (6)
  - Major depression [Unknown]
  - Psychotic symptom [Unknown]
  - Drug ineffective [Recovered/Resolved]
  - Insomnia [Unknown]
  - Therapeutic product effect decreased [Unknown]
  - Therapeutic product effect incomplete [Recovered/Resolved]
